FAERS Safety Report 5250394-2 (Version None)
Quarter: 2007Q1

REPORT INFORMATION
  Report Type: 
  Country: None (occurrence: None)
  Receive Date: 20070228
  Receipt Date: 20060407
  Transmission Date: 20070707
  Serious: No
  Sender: FDA-Public Use
  Company Number: US-GLAXOSMITHKLINE-A0600946A

PATIENT
  Age: 16 Year
  Sex: Female

DRUGS (6)
  1. LAMICTAL [Suspect]
     Dosage: 50MG PER DAY
     Route: 048
     Dates: start: 20060316
  2. CYMBALTA [Concomitant]
  3. ORAL CONTRACEPTIVES [Concomitant]
  4. ULTRAM [Concomitant]
  5. IMITREX [Concomitant]
  6. VICODIN [Concomitant]

REACTIONS (3)
  - AGITATION [None]
  - BLOOD PRESSURE INCREASED [None]
  - HEADACHE [None]
